FAERS Safety Report 9556870 (Version 2)
Quarter: 2013Q4

REPORT INFORMATION
  Report Type: Spontaneous
  Country: US (occurrence: None)
  Receive Date: 20130724
  Receipt Date: 20131226
  Transmission Date: 20140711
  Serious: No
  Sender: FDA-Public Use
  Company Number: PHEH2013US009793

PATIENT
  Age: 65 Year
  Sex: Female
  Weight: 86.6 kg

DRUGS (13)
  1. GILENYA [Suspect]
     Indication: MULTIPLE SCLEROSIS
     Route: 048
     Dates: start: 201210
  2. AMITRIPTYLINE (AMITRIPTYLINE) [Concomitant]
  3. OMEPRAZOLE (OMEPRAZOLE) [Concomitant]
  4. CO Q-10 [Concomitant]
  5. MVI [Concomitant]
  6. FISH OIL (FISH OIL) [Concomitant]
  7. MIRALAX [Concomitant]
  8. TYLENOL (PARACETAMOL) [Concomitant]
  9. CALCIUM CITRATE WITH VITAMIN D [Concomitant]
  10. ASPIRIN (ACETYLSALICYLIC ACID) [Concomitant]
  11. NAPROXEN SODIUM [Concomitant]
  12. GABAPENTIN (GABAPENTIN) [Concomitant]
  13. SIMVASTATIN (SIMVASTATIN) [Concomitant]

REACTIONS (1)
  - No adverse event [None]
